FAERS Safety Report 12740660 (Version 2)
Quarter: 2016Q3

REPORT INFORMATION
  Report Type: Spontaneous
  Country: BR (occurrence: BR)
  Receive Date: 20160914
  Receipt Date: 20160929
  Transmission Date: 20161109
  Serious: Yes (Other)
  Sender: FDA-Public Use
  Company Number: BR-009507513-1608BRA008444

PATIENT
  Age: 65 Year
  Sex: Male
  Weight: 83 kg

DRUGS (8)
  1. DIOVAN [Concomitant]
     Active Substance: VALSARTAN
     Indication: HYPERTENSION
     Dosage: ONE TABLET IN THE MORNING
     Route: 048
     Dates: start: 201212
  2. PIOGLITAZONE HYDROCHLORIDE. [Concomitant]
     Active Substance: PIOGLITAZONE HYDROCHLORIDE
     Dosage: 15 MG, ONE TABLET IN THE BREAKFAST TIME
     Route: 048
     Dates: start: 201212
  3. JARDIANCE [Concomitant]
     Active Substance: EMPAGLIFLOZIN
     Dosage: 25 MG ONE TABLET IN THE MORNING
     Route: 048
     Dates: start: 2015
  4. METOPROLOL TARTRATE. [Concomitant]
     Active Substance: METOPROLOL TARTRATE
     Dosage: 25 MG, ONE TABLET IN THE MORNING
     Route: 048
     Dates: start: 201212
  5. JANUMET [Suspect]
     Active Substance: METFORMIN HYDROCHLORIDE\SITAGLIPTIN PHOSPHATE
     Indication: DIABETES MELLITUS
     Dosage: ONE TABLET AT NIGHT DAILY
     Route: 048
     Dates: start: 201212, end: 201608
  6. LIPITOR [Concomitant]
     Active Substance: ATORVASTATIN CALCIUM
     Route: 048
  7. CRESTOR [Concomitant]
     Active Substance: ROSUVASTATIN CALCIUM
     Dosage: ONE TABLET AT NIGHT, UNK
     Route: 048
  8. ASPIRIN. [Concomitant]
     Active Substance: ASPIRIN
     Dosage: 2 TABLETS IN LUNCH TIME
     Route: 048
     Dates: start: 201212

REACTIONS (5)
  - Stent placement [Unknown]
  - Gastrointestinal carcinoma [Unknown]
  - Blood glucose abnormal [Unknown]
  - Metastases to liver [Unknown]
  - Catheterisation cardiac [Unknown]

NARRATIVE: CASE EVENT DATE: 201212
